FAERS Safety Report 8837314 (Version 3)
Quarter: 2014Q2

REPORT INFORMATION
  Report Type: Spontaneous
  Country: DK (occurrence: DK)
  Receive Date: 20121012
  Receipt Date: 20131018
  Transmission Date: 20141212
  Serious: Yes (Life-Threatening)
  Sender: FDA-Public Use
  Company Number: DK-PFIZER INC-2012230718

PATIENT
  Age: 62 Year
  Sex: Female

DRUGS (10)
  1. DEPO-MEDROL [Suspect]
     Indication: JOINT INJURY
     Dosage: 40 MG
     Dates: start: 20120911, end: 20120911
  2. CARBOCAIN [Concomitant]
     Dosage: UNK
     Dates: start: 20120911
  3. NOVORAPID [Concomitant]
     Dosage: 5 IU, 3X/DAY
     Dates: start: 2008
  4. LANTUS [Concomitant]
     Dosage: 12 IU
     Dates: start: 2008
  5. ELTROXIN [Concomitant]
     Dosage: 100 UG, 1X/DAY
     Dates: start: 20090630
  6. ATORVASTATIN [Concomitant]
     Dosage: 20 MG, 1X/DAY
     Dates: start: 2007
  7. CORODIL [Concomitant]
     Dosage: 20 MG, 1X/DAY
     Dates: start: 2007
  8. OXYCONTIN [Concomitant]
     Dosage: 10 MG, 2X/DAY
     Dates: start: 2011
  9. APOVIT D3 [Concomitant]
     Dosage: 40000 IU, 1X/DAY
     Dates: start: 20120720
  10. CALCIUM FLUORIDE [Concomitant]
     Dosage: 4 MELTING TABLET (DF), 3X/DAY
     Dates: start: 20120720

REACTIONS (4)
  - Blood pressure decreased [Not Recovered/Not Resolved]
  - Asthma [Not Recovered/Not Resolved]
  - Seasonal allergy [Not Recovered/Not Resolved]
  - Discomfort [Not Recovered/Not Resolved]
